FAERS Safety Report 7589333-8 (Version None)
Quarter: 2011Q2

REPORT INFORMATION
  Report Type: 
  Country: None (occurrence: None)
  Receive Date: 20110603
  Receipt Date: 20110329
  Transmission Date: 20111010
  Serious: No
  Sender: FDA-Public Use
  Company Number: 2011SP014580

PATIENT
  Sex: Female

DRUGS (1)
  1. SAPHRIS [Suspect]
     Indication: BIPOLAR DISORDER
     Dates: start: 20101201, end: 20110322

REACTIONS (3)
  - CHOKING [None]
  - INCORRECT ROUTE OF DRUG ADMINISTRATION [None]
  - COUGH [None]
